FAERS Safety Report 19694402 (Version 3)
Quarter: 2021Q3

REPORT INFORMATION
  Report Type: Report from Study
  Country: US (occurrence: US)
  Receive Date: 20210813
  Receipt Date: 20210923
  Transmission Date: 20211014
  Serious: No
  Sender: FDA-Public Use
  Company Number: NVSC2021US182836

PATIENT
  Sex: Male

DRUGS (1)
  1. ENTRESTO [Suspect]
     Active Substance: SACUBITRIL\VALSARTAN
     Indication: PRODUCT USED FOR UNKNOWN INDICATION
     Dosage: UNK UNK, BID
     Route: 048
     Dates: start: 202107

REACTIONS (7)
  - Balance disorder [Unknown]
  - Cough [Unknown]
  - Memory impairment [Unknown]
  - Throat clearing [Unknown]
  - Constipation [Recovered/Resolved]
  - Hypersensitivity [Unknown]
  - Aphonia [Unknown]
